FAERS Safety Report 9560062 (Version 1)
Quarter: 2013Q3

REPORT INFORMATION
  Report Type: Spontaneous
  Country: US (occurrence: US)
  Receive Date: 20130927
  Receipt Date: 20130927
  Transmission Date: 20140515
  Serious: No
  Sender: FDA-Public Use
  Company Number: US-PFIZER INC-2013276861

PATIENT
  Age: 60 Year
  Sex: Male
  Weight: 118 kg

DRUGS (5)
  1. PHENYTOIN [Suspect]
     Indication: EPILEPSY
     Dosage: 2X100MG IN MORNING AND 3X100MG IN EVENING, 2X/DAY
     Dates: start: 2005, end: 2008
  2. PHENYTOIN [Suspect]
     Indication: GRAND MAL CONVULSION
  3. BENICAR HCT [Concomitant]
     Indication: HYPERTENSION
     Dosage: UNK
  4. LIPITOR [Concomitant]
     Indication: BLOOD CHOLESTEROL INCREASED
     Dosage: UNK
  5. MELOXICAM [Concomitant]
     Indication: ARTHRITIS
     Dosage: UNK

REACTIONS (2)
  - Drug ineffective [Unknown]
  - Intentional drug misuse [Unknown]
